FAERS Safety Report 26095539 (Version 2)
Quarter: 2025Q4

REPORT INFORMATION
  Report Type: Spontaneous
  Country: US (occurrence: US)
  Receive Date: 20251127
  Receipt Date: 20251209
  Transmission Date: 20260117
  Serious: Yes (Hospitalization)
  Sender: TEVA
  Company Number: US-TEVA-VS-3394820

PATIENT
  Age: 52 Year
  Sex: Female

DRUGS (1)
  1. CISPLATIN [Suspect]
     Active Substance: CISPLATIN
     Indication: Squamous cell carcinoma of the oral cavity
     Route: 065

REACTIONS (3)
  - Toxicity to various agents [Recovering/Resolving]
  - Gastritis [Recovering/Resolving]
  - Pancytopenia [Recovering/Resolving]
